FAERS Safety Report 24856344 (Version 1)
Quarter: 2025Q1

REPORT INFORMATION
  Report Type: Report from Study
  Country: PH (occurrence: PH)
  Receive Date: 20250117
  Receipt Date: 20250117
  Transmission Date: 20250409
  Serious: Yes (Hospitalization)
  Sender: OTSUKA
  Company Number: PH-OTSUKA-2025_001043

PATIENT
  Age: 61 Year
  Sex: Female

DRUGS (1)
  1. TOLVAPTAN [Suspect]
     Active Substance: TOLVAPTAN
     Indication: Renal failure
     Dosage: 1 DF, QD (15 MG 1 TABLET A DAY)
     Route: 048
     Dates: end: 202412

REACTIONS (2)
  - Dialysis [Unknown]
  - Product use in unapproved indication [Unknown]

NARRATIVE: CASE EVENT DATE: 20241201
